FAERS Safety Report 14822873 (Version 2)
Quarter: 2018Q2

REPORT INFORMATION
  Report Type: Spontaneous
  Country: JP (occurrence: JP)
  Receive Date: 20180427
  Receipt Date: 20180503
  Transmission Date: 20180711
  Serious: Yes (Hospitalization, Other)
  Sender: FDA-Public Use
  Company Number: JP-PFIZER INC-2018163458

PATIENT
  Age: 74 Year
  Sex: Male

DRUGS (1)
  1. SUTENT [Suspect]
     Active Substance: SUNITINIB MALATE
     Indication: RENAL CANCER METASTATIC
     Dosage: UNK

REACTIONS (3)
  - Sepsis [Unknown]
  - Pneumonia [Unknown]
  - Neutrophil count decreased [Recovered/Resolved]
